FAERS Safety Report 5056635-9 (Version None)
Quarter: 2006Q2

REPORT INFORMATION
  Report Type: 
  Country: None (occurrence: None)
  Receive Date: 20060616
  Receipt Date: 20060424
  Transmission Date: 20061013
  Serious: No
  Sender: FDA-Public Use
  Company Number: 2006US000490

PATIENT
  Age: 56 Year
  Sex: Male

DRUGS (1)
  1. VESICARE [Suspect]
     Indication: INCONTINENCE
     Dates: start: 20040101

REACTIONS (1)
  - DRUG INEFFECTIVE [None]
